FAERS Safety Report 8232506-1 (Version None)
Quarter: 2012Q1

REPORT INFORMATION
  Report Type: 
  Country: None (occurrence: None)
  Receive Date: 20120323
  Receipt Date: 20120316
  Transmission Date: 20120608
  Serious: Yes (Hospitalization, Other)
  Sender: FDA-Public Use
  Company Number: US-ELI_LILLY_AND_COMPANY-US201009006684

PATIENT
  Sex: Female

DRUGS (4)
  1. HUMULIN 70/30 [Suspect]
     Indication: DIABETES MELLITUS
     Dosage: 16 U, 2/D
     Dates: start: 19900101
  2. HUMULIN R [Suspect]
     Indication: DIABETES MELLITUS
     Dosage: UNK, AS NEEDED
  3. LANTUS [Concomitant]
     Dosage: UNK
  4. NOVOLIN R [Concomitant]

REACTIONS (25)
  - SKIN DISCOLOURATION [None]
  - GASTROINTESTINAL DISORDER [None]
  - BONE DISORDER [None]
  - HYPERSENSITIVITY [None]
  - IMPAIRED HEALING [None]
  - ARTERIAL DISORDER [None]
  - VENOUS INSUFFICIENCY [None]
  - VENOUS OCCLUSION [None]
  - HOSPITALISATION [None]
  - INTESTINAL PERFORATION [None]
  - SKIN GRAFT [None]
  - CONSTIPATION [None]
  - PAIN IN EXTREMITY [None]
  - ARTHRALGIA [None]
  - MALAISE [None]
  - ARTERIAL OCCLUSIVE DISEASE [None]
  - LOCALISED INFECTION [None]
  - PRURITUS [None]
  - OSTEOMYELITIS [None]
  - GASTRIC DISORDER [None]
  - SNEEZING [None]
  - MOBILITY DECREASED [None]
  - COUGH [None]
  - HYPERKERATOSIS [None]
  - FEAR [None]
